FAERS Safety Report 18146841 (Version 1)
Quarter: 2020Q3

REPORT INFORMATION
  Report Type: Spontaneous
  Country: US (occurrence: US)
  Receive Date: 20200813
  Receipt Date: 20200813
  Transmission Date: 20201103
  Serious: No
  Sender: FDA-Public Use
  Company Number: US-TOPCARE PREMIER BRANDS OF AMERICA INC.-2088586

PATIENT
  Age: 76 Year
  Sex: Female
  Weight: 65.91 kg

DRUGS (4)
  1. CEPHALEXIN. [Concomitant]
     Active Substance: CEPHALEXIN
  2. SALICYLIC ACID. [Suspect]
     Active Substance: SALICYLIC ACID
     Indication: SKIN LESION REMOVAL
     Route: 003
     Dates: start: 20200121, end: 20200122
  3. NEOSPORIN [Concomitant]
     Active Substance: BACITRACIN ZINC\NEOMYCIN SULFATE\POLYMYXIN B SULFATE
  4. BETADINE [Concomitant]
     Active Substance: POVIDONE-IODINE

REACTIONS (2)
  - Cellulitis [Recovered/Resolved]
  - Ulcer [None]

NARRATIVE: CASE EVENT DATE: 20200122
